FAERS Safety Report 13256721 (Version 3)
Quarter: 2018Q1

REPORT INFORMATION
  Report Type: Report from Study
  Country: US (occurrence: US)
  Receive Date: 20170221
  Receipt Date: 20180131
  Transmission Date: 20180508
  Serious: Yes (Death, Life-Threatening)
  Sender: FDA-Public Use
  Company Number: US-MYLANLABS-2017M1005122

PATIENT
  Sex: Male
  Weight: 99.25 kg

DRUGS (1)
  1. CLOZAPINE. [Suspect]
     Active Substance: CLOZAPINE
     Indication: PRODUCT USED FOR UNKNOWN INDICATION
     Dosage: UNK

REACTIONS (4)
  - Metabolic encephalopathy [Unknown]
  - Cardiac failure congestive [Fatal]
  - Chronic kidney disease [Unknown]
  - Chronic obstructive pulmonary disease [Fatal]
